FAERS Safety Report 6301508-4 (Version None)
Quarter: 2009Q3

REPORT INFORMATION
  Report Type: 
  Country: None (occurrence: None)
  Receive Date: 20090807
  Receipt Date: 20090729
  Transmission Date: 20100115
  Serious: Yes (Hospitalization)
  Sender: FDA-Public Use
  Company Number: B0586205A

PATIENT
  Sex: Male

DRUGS (7)
  1. ZOPHREN [Suspect]
     Indication: DRUG USE FOR UNKNOWN INDICATION
     Route: 042
     Dates: start: 20081223, end: 20081223
  2. AVASTIN [Suspect]
     Indication: CHEMOTHERAPY
     Route: 042
     Dates: start: 20081223, end: 20081223
  3. VINORELBINE [Suspect]
     Indication: CHEMOTHERAPY
     Route: 042
     Dates: start: 20081223, end: 20081223
  4. CISPLATIN [Suspect]
     Indication: CHEMOTHERAPY
     Route: 042
     Dates: start: 20081223, end: 20081223
  5. SOLU-MEDROL [Suspect]
     Indication: DRUG USE FOR UNKNOWN INDICATION
     Route: 042
     Dates: start: 20081223, end: 20081223
  6. PRIMPERAN [Suspect]
     Indication: DRUG USE FOR UNKNOWN INDICATION
     Dosage: 10MG TWICE PER DAY
     Route: 048
     Dates: start: 20081224, end: 20081229
  7. SOLUPRED [Suspect]
     Indication: DRUG USE FOR UNKNOWN INDICATION
     Dosage: 20MG IN THE MORNING
     Route: 048
     Dates: start: 20081224, end: 20081229

REACTIONS (6)
  - FALL [None]
  - HEADACHE [None]
  - ISCHAEMIC STROKE [None]
  - MUSCULAR WEAKNESS [None]
  - PARAESTHESIA [None]
  - THROMBOPHLEBITIS [None]
